FAERS Safety Report 8307816-X (Version None)
Quarter: 2012Q2

REPORT INFORMATION
  Report Type: 
  Country: None (occurrence: None)
  Receive Date: 20120424
  Receipt Date: 20090608
  Transmission Date: 20120825
  Serious: Yes (Life-Threatening)
  Sender: FDA-Public Use
  Company Number: US-TEVA-2009002841

PATIENT
  Sex: Male
  Weight: 54 kg

DRUGS (1)
  1. PROVIGIL [Suspect]
     Dosage: 100 MILLIGRAM;
     Route: 048
     Dates: start: 20090121, end: 20090319

REACTIONS (1)
  - SWELLING [None]
